FAERS Safety Report 7909948-4 (Version None)
Quarter: 2011Q4

REPORT INFORMATION
  Report Type: 
  Country: None (occurrence: None)
  Receive Date: 20111111
  Receipt Date: 20111103
  Transmission Date: 20120403
  Serious: Yes (Hospitalization)
  Sender: FDA-Public Use
  Company Number: RS-JNJFOC-20111009930

PATIENT
  Sex: Male
  Weight: 74 kg

DRUGS (10)
  1. REMICADE [Suspect]
     Dosage: 3 MG/KG
     Route: 042
     Dates: start: 20101020
  2. REMICADE [Suspect]
     Indication: RHEUMATOID ARTHRITIS
     Route: 042
     Dates: start: 20101201
  3. REMICADE [Suspect]
     Route: 042
     Dates: start: 20110322
  4. MELOXICAM [Concomitant]
  5. REMICADE [Suspect]
     Route: 042
     Dates: start: 20110517
  6. REMICADE [Suspect]
     Route: 042
     Dates: start: 20110711
  7. REMICADE [Suspect]
     Route: 042
     Dates: start: 20110105
  8. FOLAN [Concomitant]
     Dosage: 5 MG AFTER TAKING METHOTREXATE
  9. PRONISON [Concomitant]
     Dates: start: 20110720
  10. REMICADE [Suspect]
     Route: 042
     Dates: start: 20101103

REACTIONS (1)
  - ACUTE MYOCARDIAL INFARCTION [None]
